FAERS Safety Report 19313730 (Version 3)
Quarter: 2022Q1

REPORT INFORMATION
  Report Type: Spontaneous
  Country: JP (occurrence: JP)
  Receive Date: 20210527
  Receipt Date: 20220202
  Transmission Date: 20220423
  Serious: Yes (Death, Life-Threatening, Hospitalization, Other)
  Sender: FDA-Public Use
  Company Number: JP-MLMSERVICE-20210512-2884159-1

PATIENT
  Age: 66 Year
  Sex: Male

DRUGS (12)
  1. METHYLPREDNISOLONE SODIUM SUCCINATE [Suspect]
     Active Substance: METHYLPREDNISOLONE SODIUM SUCCINATE
     Indication: Microscopic polyangiitis
     Dosage: 1000 MG, DAILY FREQ:24 H;HIGH-DOSE
     Route: 042
  2. METHYLPREDNISOLONE SODIUM SUCCINATE [Suspect]
     Active Substance: METHYLPREDNISOLONE SODIUM SUCCINATE
     Dosage: 24 MG, DAILY
  3. BETAMETHASONE [Suspect]
     Active Substance: BETAMETHASONE
     Indication: Microscopic polyangiitis
     Dosage: 65 MG, DAILY FREQ:24 H;
  4. BETAMETHASONE [Suspect]
     Active Substance: BETAMETHASONE
     Dosage: 28 MG, DAILY FREQ:24 H;
  5. BETAMETHASONE [Suspect]
     Active Substance: BETAMETHASONE
     Dosage: 60 MG, DAILY FREQ:24 H;
  6. BETAMETHASONE [Suspect]
     Active Substance: BETAMETHASONE
     Dosage: 24 MG, DAILY FREQ:24 H;
  7. BETAMETHASONE [Suspect]
     Active Substance: BETAMETHASONE
     Dosage: 36 MG, DAILY FREQ:24 H;
  8. BETAMETHASONE [Suspect]
     Active Substance: BETAMETHASONE
     Dosage: 26 MG, DAILY FREQ:24 H;
  9. BETAMETHASONE [Suspect]
     Active Substance: BETAMETHASONE
     Dosage: 50 MG, DAILY FREQ:24 H;
  10. SUVOREXANT [Concomitant]
     Active Substance: SUVOREXANT
     Indication: Insomnia
     Dosage: UNK
  11. RITUXIMAB [Concomitant]
     Active Substance: RITUXIMAB
     Indication: Microscopic polyangiitis
     Dosage: (630 MG/BODYMG/KG)
  12. FLUNITRAZEPAM [Concomitant]
     Active Substance: FLUNITRAZEPAM
     Indication: Insomnia
     Dosage: UNK

REACTIONS (9)
  - Arterial rupture [Fatal]
  - Shock haemorrhagic [Fatal]
  - Mesenteric haematoma [Fatal]
  - Posterior reversible encephalopathy syndrome [Unknown]
  - Haemoperitoneum [Fatal]
  - Steroid diabetes [Unknown]
  - Cardio-respiratory arrest [Fatal]
  - Intra-abdominal haemorrhage [Fatal]
  - Hypertension [Fatal]
